FAERS Safety Report 15477078 (Version 1)
Quarter: 2018Q4

REPORT INFORMATION
  Report Type: Spontaneous
  Country: US (occurrence: US)
  Receive Date: 20181001
  Receipt Date: 20181001
  Transmission Date: 20190205
  Serious: No
  Sender: FDA-Public Use
  Company Number: None

PATIENT
  Age: 37 Year
  Sex: Female

DRUGS (1)
  1. COPAXONE [Suspect]
     Active Substance: GLATIRAMER ACETATE
     Indication: MULTIPLE SCLEROSIS
     Dates: start: 20171009, end: 20180815

REACTIONS (6)
  - Multiple sclerosis [None]
  - Burning sensation [None]
  - Fatigue [None]
  - Therapy cessation [None]
  - Disease progression [None]
  - Vitreous floaters [None]

NARRATIVE: CASE EVENT DATE: 20180928
